FAERS Safety Report 6396440-4 (Version None)
Quarter: 2009Q4

REPORT INFORMATION
  Report Type: 
  Country: None (occurrence: None)
  Receive Date: 20091012
  Receipt Date: 20091005
  Transmission Date: 20100525
  Serious: Yes (Hospitalization)
  Sender: FDA-Public Use
  Company Number: US-JNJFOC-20090106168

PATIENT
  Sex: Female
  Weight: 73.48 kg

DRUGS (4)
  1. DURAGESIC-100 [Suspect]
     Dosage: 2 PATCHES OF 100 UG/HR
     Route: 062
  2. DURAGESIC-100 [Suspect]
     Indication: SYSTEMIC LUPUS ERYTHEMATOSUS
     Route: 062
  3. COUMADIN [Concomitant]
     Indication: THROMBOSIS
     Route: 065
  4. UNSPECIFIED MEDICATIONS [Concomitant]
     Route: 065

REACTIONS (8)
  - ARTHRALGIA [None]
  - BLADDER DISORDER [None]
  - DERMATITIS CONTACT [None]
  - INCORRECT DRUG ADMINISTRATION DURATION [None]
  - MENTAL IMPAIRMENT [None]
  - MULTIPLE SCLEROSIS [None]
  - OESOPHAGEAL STENOSIS [None]
  - SYSTEMIC LUPUS ERYTHEMATOSUS [None]
